FAERS Safety Report 9859794 (Version 1)
Quarter: 2014Q1

REPORT INFORMATION
  Report Type: Spontaneous
  Country: US (occurrence: US)
  Receive Date: 20140131
  Receipt Date: 20140131
  Transmission Date: 20141002
  Serious: No
  Sender: FDA-Public Use
  Company Number: US-PFIZER INC-2014028172

PATIENT
  Age: 42 Year
  Sex: Female
  Weight: 70 kg

DRUGS (2)
  1. LEVOTHYROXINE SODIUM [Suspect]
     Indication: HYPOTHYROIDISM
     Dosage: 175 UG, 1X/DAY
     Dates: start: 2013
  2. TOPAMAX [Concomitant]
     Indication: MIGRAINE
     Dosage: UNK

REACTIONS (2)
  - Weight increased [Unknown]
  - Blood thyroid stimulating hormone increased [Unknown]
